FAERS Safety Report 11522685 (Version 2)
Quarter: 2015Q4

REPORT INFORMATION
  Report Type: Report from Study
  Country: DE (occurrence: DE)
  Receive Date: 20150918
  Receipt Date: 20151019
  Transmission Date: 20160304
  Serious: Yes (Hospitalization)
  Sender: FDA-Public Use
  Company Number: DE-ABBVIE-15P-062-1463783-00

PATIENT
  Age: 77 Year
  Sex: Male

DRUGS (2)
  1. DUODOPA [Suspect]
     Active Substance: CARBIDOPA\LEVODOPA
     Indication: PARKINSON^S DISEASE
     Dosage: MD 10ML, CRD 2.8ML/H, ED 1.0ML
     Route: 050
     Dates: start: 20141006, end: 201509
  2. DUODOPA [Suspect]
     Active Substance: CARBIDOPA\LEVODOPA
     Dosage: MD 10ML, CRD 5ML/H, ED 2ML
     Route: 050
     Dates: start: 201509

REACTIONS (3)
  - Akinesia [Recovering/Resolving]
  - Cerebrovascular accident [Recovering/Resolving]
  - Paresis [Not Recovered/Not Resolved]

NARRATIVE: CASE EVENT DATE: 201509
